FAERS Safety Report 10367030 (Version 2)
Quarter: 2014Q3

REPORT INFORMATION
  Report Type: Report from Study
  Country: US (occurrence: US)
  Receive Date: 20140807
  Receipt Date: 20140827
  Transmission Date: 20150326
  Serious: Yes (Death, Hospitalization)
  Sender: FDA-Public Use
  Company Number: US-BIOGENIDEC-2014BI074557

PATIENT
  Age: 73 Year
  Sex: Female

DRUGS (2)
  1. AVONEX [Concomitant]
     Active Substance: INTERFERON BETA-1A
     Indication: MULTIPLE SCLEROSIS
     Route: 030
     Dates: start: 19970515
  2. TYSABRI [Suspect]
     Active Substance: NATALIZUMAB
     Indication: MULTIPLE SCLEROSIS
     Route: 042
     Dates: start: 20130916, end: 20140528

REACTIONS (7)
  - Death [Fatal]
  - Urinary tract infection [Fatal]
  - Pain [Not Recovered/Not Resolved]
  - Hypertension [Unknown]
  - Pneumonia [Fatal]
  - Pyrexia [Recovered/Resolved]
  - Urosepsis [Fatal]

NARRATIVE: CASE EVENT DATE: 201407
